FAERS Safety Report 13378264 (Version 1)
Quarter: 2017Q1

REPORT INFORMATION
  Report Type: Spontaneous
  Country: US (occurrence: US)
  Receive Date: 20170328
  Receipt Date: 20170328
  Transmission Date: 20170429
  Serious: Yes (Other)
  Sender: FDA-Public Use
  Company Number: US-INSYS THERAPEUTICS, INC-INS201703-000197

PATIENT
  Sex: Male

DRUGS (3)
  1. SUBSYS [Suspect]
     Active Substance: FENTANYL
     Indication: BACK PAIN
     Route: 060
     Dates: start: 20130723
  2. SUBSYS [Suspect]
     Active Substance: FENTANYL
     Route: 060
     Dates: end: 201511
  3. SUBSYS [Suspect]
     Active Substance: FENTANYL
     Indication: PAIN IN EXTREMITY
     Route: 060

REACTIONS (7)
  - Lethargy [Unknown]
  - Drug dependence [Unknown]
  - Overdose [Unknown]
  - Coma [Unknown]
  - Injury [Unknown]
  - Drug withdrawal syndrome [Unknown]
  - Depression [Unknown]
